FAERS Safety Report 5850716-5 (Version None)
Quarter: 2008Q3

REPORT INFORMATION
  Report Type: 
  Country: None (occurrence: None)
  Receive Date: 20080818
  Receipt Date: 20080807
  Transmission Date: 20090109
  Serious: Yes (Hospitalization, Other)
  Sender: FDA-Public Use
  Company Number: 100#03#2008-03959

PATIENT
  Age: 24 Year
  Sex: Female

DRUGS (1)
  1. ONDANSETRON HCL [Suspect]
     Indication: PROPHYLAXIS
     Dosage: 4 MG INTRAVENOUS
     Route: 042
     Dates: start: 20080602

REACTIONS (4)
  - ASTHENIA [None]
  - DEPRESSED LEVEL OF CONSCIOUSNESS [None]
  - DYSTONIA [None]
  - VISUAL IMPAIRMENT [None]
